FAERS Safety Report 15589434 (Version 1)
Quarter: 2018Q4

REPORT INFORMATION
  Report Type: Report from Study
  Country: US (occurrence: US)
  Receive Date: 20181106
  Receipt Date: 20181106
  Transmission Date: 20190205
  Serious: Yes (Hospitalization)
  Sender: FDA-Public Use
  Company Number: US-TESAROUBC-2018-TSO1549-US

PATIENT
  Age: 86 Year
  Sex: Female

DRUGS (1)
  1. ZEJULA [Suspect]
     Active Substance: NIRAPARIB
     Indication: OVARIAN CANCER
     Dosage: 200 MG, QD
     Dates: start: 20181004, end: 20181010

REACTIONS (9)
  - Insomnia [Unknown]
  - Constipation [Unknown]
  - Confusional state [Unknown]
  - Pharyngitis [Unknown]
  - Stomatitis [Unknown]
  - Nausea [Unknown]
  - Candida infection [Unknown]
  - Underdose [Unknown]
  - Fall [Unknown]

NARRATIVE: CASE EVENT DATE: 201810
